FAERS Safety Report 4926423-X (Version None)
Quarter: 2006Q1

REPORT INFORMATION
  Report Type: 
  Country: None (occurrence: None)
  Receive Date: 20060228
  Receipt Date: 20051117
  Transmission Date: 20060701
  Serious: No
  Sender: FDA-Public Use
  Company Number: US-GLAXOSMITHKLINE-A0582766A

PATIENT
  Age: 52 Year
  Sex: Female

DRUGS (8)
  1. LAMICTAL [Suspect]
     Indication: BIPOLAR DISORDER
     Dosage: 25MG PER DAY
     Route: 048
     Dates: start: 20051001, end: 20051001
  2. ABILIFY [Suspect]
     Dosage: 5MG PER DAY
     Dates: start: 20051101, end: 20051101
  3. AMBIEN [Concomitant]
  4. DARVOCET [Concomitant]
  5. ZANAFLEX [Concomitant]
  6. ALLEGRA [Concomitant]
  7. WELLBUTRIN XL [Concomitant]
  8. LEXAPRO [Concomitant]

REACTIONS (3)
  - PRURITUS [None]
  - RASH [None]
  - URTICARIA [None]
